FAERS Safety Report 6866483-2 (Version None)
Quarter: 2010Q3

REPORT INFORMATION
  Report Type: 
  Country: None (occurrence: None)
  Receive Date: 20100722
  Receipt Date: 20100713
  Transmission Date: 20110219
  Serious: Yes (Other)
  Sender: FDA-Public Use
  Company Number: PHHY2010BR13533

PATIENT
  Sex: Male

DRUGS (1)
  1. DIOVAN [Suspect]
     Dosage: 160/5/12.5 MG TABLET

REACTIONS (2)
  - BLOOD POTASSIUM DECREASED [None]
  - CATHETER PLACEMENT [None]
